FAERS Safety Report 8012232-4 (Version None)
Quarter: 2011Q4

REPORT INFORMATION
  Report Type: 
  Country: None (occurrence: None)
  Receive Date: 20111228
  Receipt Date: 20111215
  Transmission Date: 20120403
  Serious: Yes (Death, Hospitalization, Other)
  Sender: FDA-Public Use
  Company Number: JP-ROCHE-1002944

PATIENT
  Sex: Male
  Weight: 40 kg

DRUGS (10)
  1. RISUMIC [Concomitant]
     Route: 048
     Dates: start: 20110809
  2. MIRCERA [Suspect]
     Indication: NEPHROGENIC ANAEMIA
     Route: 042
     Dates: start: 20110901, end: 20110901
  3. MIRCERA [Suspect]
     Route: 042
     Dates: start: 20111001, end: 20111001
  4. BIOFERMIN (LACTOBACTERIA/GLYCOBACTERIA) [Concomitant]
     Indication: PRODUCT USED FOR UNKNOWN INDICATION
     Dosage: DOSAGE IS UNCERTAIN.
     Route: 048
  5. BIO-THREE [Concomitant]
     Dosage: DOSAGE IS UNCERTAIN.
     Route: 048
     Dates: start: 20110924
  6. TANNALBIN [Concomitant]
     Indication: DIARRHOEA
     Dosage: DOSAGE IS UNCERTAIN.
     Route: 048
  7. DEPAS [Suspect]
     Indication: DIARRHOEA
     Dosage: DOSAGE IS UNCERTAIN.
     Route: 048
  8. LOPERAMIDE HCL [Concomitant]
     Indication: DIARRHOEA
     Dosage: DOSAGE IS UNCERTAIN.
     Route: 048
  9. MECOBALAMIN [Concomitant]
     Route: 042
     Dates: start: 20110310
  10. DOPS [Concomitant]
     Route: 048
     Dates: start: 20110809

REACTIONS (14)
  - ANURIA [None]
  - ENCEPHALOPATHY [None]
  - BLOOD ALKALINE PHOSPHATASE INCREASED [None]
  - HEPATIC ATROPHY [None]
  - PLATELET COUNT DECREASED [None]
  - LIVER DISORDER [None]
  - RESPIRATORY FAILURE [None]
  - HYPOGLYCAEMIA [None]
  - ASPARTATE AMINOTRANSFERASE INCREASED [None]
  - PLEURAL EFFUSION [None]
  - BLOOD PRESSURE DECREASED [None]
  - ALTERED STATE OF CONSCIOUSNESS [None]
  - ALANINE AMINOTRANSFERASE INCREASED [None]
  - BLOOD LACTATE DEHYDROGENASE INCREASED [None]
